FAERS Safety Report 12314504 (Version 4)
Quarter: 2016Q2

REPORT INFORMATION
  Report Type: Spontaneous
  Country: US (occurrence: US)
  Receive Date: 20160428
  Receipt Date: 20160617
  Transmission Date: 20160815
  Serious: Yes (Hospitalization)
  Sender: FDA-Public Use
  Company Number: US-GLAXOSMITHKLINE-US2016058867

PATIENT
  Age: 72 Year
  Sex: Female

DRUGS (5)
  1. PANTENOL [Concomitant]
  2. LEVOTHYROXINE. [Concomitant]
     Active Substance: LEVOTHYROXINE
  3. PROZAC [Concomitant]
     Active Substance: FLUOXETINE HYDROCHLORIDE
  4. LAMICTAL [Suspect]
     Active Substance: LAMOTRIGINE
     Dosage: 100 MG, 1D
     Route: 048
     Dates: start: 201512
  5. LAMICTAL [Suspect]
     Active Substance: LAMOTRIGINE
     Indication: DEPRESSION
     Dosage: 40 MG, 1D
     Route: 048

REACTIONS (13)
  - Rash generalised [Recovering/Resolving]
  - Pruritus [Recovering/Resolving]
  - Emergency care [Unknown]
  - Rash pruritic [Unknown]
  - Weight decreased [Unknown]
  - Rash erythematous [Recovering/Resolving]
  - Drug eruption [Recovering/Resolving]
  - Glossodynia [Unknown]
  - Oral pain [Unknown]
  - Gastric disorder [Recovered/Resolved]
  - Hypersensitivity [Unknown]
  - Oral mucosal eruption [Unknown]
  - Abdominal pain upper [Recovering/Resolving]

NARRATIVE: CASE EVENT DATE: 201512
